FAERS Safety Report 7679563-9 (Version None)
Quarter: 2011Q3

REPORT INFORMATION
  Report Type: 
  Country: None (occurrence: None)
  Receive Date: 20110812
  Receipt Date: 20110808
  Transmission Date: 20111222
  Serious: Yes (Other)
  Sender: FDA-Public Use
  Company Number: CHPA2011US10616

PATIENT
  Age: 94 Year
  Sex: Female

DRUGS (2)
  1. DRUG THERAPY NOS [Concomitant]
     Dosage: UNK
  2. BENEFIBER STICK PACKS [Suspect]
     Indication: CONSTIPATION
     Dosage: UNK , UNK
     Route: 048
     Dates: end: 20110101

REACTIONS (4)
  - CORNEAL TRANSPLANT [None]
  - DRUG INEFFECTIVE FOR UNAPPROVED INDICATION [None]
  - COLONOSCOPY [None]
  - THERAPEUTIC RESPONSE UNEXPECTED [None]
